FAERS Safety Report 5552898-1 (Version None)
Quarter: 2007Q4

REPORT INFORMATION
  Report Type: 
  Country: None (occurrence: None)
  Receive Date: 20071211
  Receipt Date: 20071127
  Transmission Date: 20080405
  Serious: Yes (Hospitalization)
  Sender: FDA-Public Use
  Company Number: B0498759A

PATIENT
  Age: 12 Year
  Sex: Male
  Weight: 49.8957 kg

DRUGS (7)
  1. ALBUTEROL SULFATE [Suspect]
     Indication: ASTHMA
     Dosage: SEE DOSAGE TEXT / INHALED
     Route: 055
  2. FLUTICASONE PROPIONATE+SALMETEROL XINAFOATE UNSPECIFIED INHA (FLUTICAS [Suspect]
     Dosage: PER DAY / INHALED
     Route: 055
  3. ADRENALINE [Concomitant]
  4. IPRATROPIUM BROMIDE [Concomitant]
  5. DEXAMETHASONE TAB [Concomitant]
  6. KETAMINE HCL [Concomitant]
  7. SODIUM CHLORIDE [Concomitant]

REACTIONS (1)
  - METABOLIC ACIDOSIS [None]
